FAERS Safety Report 6594346-9 (Version None)
Quarter: 2010Q1

REPORT INFORMATION
  Report Type: 
  Country: None (occurrence: None)
  Receive Date: 20100222
  Receipt Date: 20100209
  Transmission Date: 20100710
  Serious: Yes (Death)
  Sender: FDA-Public Use
  Company Number: GB-TYCO HEALTHCARE/MALLINCKRODT-T201000625

PATIENT
  Age: 40 Year
  Sex: Male

DRUGS (6)
  1. TEMAZEPAM [Suspect]
     Dosage: UNK
  2. OXYCODONE HCL [Suspect]
     Dosage: UNK
  3. DIAZEPAM [Suspect]
     Dosage: UNK
  4. HEROIN [Suspect]
     Dosage: UNK
  5. CITALOPRAM HYDROBROMIDE [Suspect]
     Dosage: UNK
  6. AMITRIPTYLINE HCL [Suspect]
     Dosage: UNK

REACTIONS (1)
  - DRUG TOXICITY [None]
